FAERS Safety Report 8310924-0 (Version None)
Quarter: 2012Q2

REPORT INFORMATION
  Report Type: 
  Country: None (occurrence: None)
  Receive Date: 20120425
  Receipt Date: 20120412
  Transmission Date: 20120825
  Serious: Yes (Other)
  Sender: FDA-Public Use
  Company Number: US-BIOGENIDEC-2012BI013034

PATIENT
  Age: 36 Year
  Sex: Female
  Weight: 82 kg

DRUGS (9)
  1. TYSABRI [Suspect]
     Indication: CROHN'S DISEASE
     Route: 042
     Dates: start: 20100318
  2. BACTRIM [Concomitant]
  3. PROCHLORPERAZINE MALEATE [Concomitant]
  4. MAGNESIUM [Concomitant]
  5. MACROBID [Concomitant]
  6. VITAMIN D [Concomitant]
  7. TOPAMAX [Concomitant]
  8. MEDROL [Concomitant]
  9. DIFLUCAN [Concomitant]

REACTIONS (5)
  - MUSCULAR WEAKNESS [None]
  - HEADACHE [None]
  - PROGRESSIVE MULTIFOCAL LEUKOENCEPHALOPATHY [None]
  - APHASIA [None]
  - VISUAL ACUITY REDUCED [None]
